FAERS Safety Report 9490098 (Version 2)
Quarter: 2013Q4

REPORT INFORMATION
  Report Type: Report from Study
  Country: US (occurrence: US)
  Receive Date: 20130829
  Receipt Date: 20131004
  Transmission Date: 20140711
  Serious: Yes (Death)
  Sender: FDA-Public Use
  Company Number: US-ROCHE-1268483

PATIENT
  Age: 64 Year
  Sex: Female
  Weight: 53.57 kg

DRUGS (5)
  1. XELODA [Suspect]
     Indication: PRODUCT USED FOR UNKNOWN INDICATION
     Route: 065
  2. TPN [Concomitant]
     Route: 051
  3. NEUPOGEN [Concomitant]
     Indication: NEUTROPENIA
     Route: 058
     Dates: start: 201307, end: 20130724
  4. DIFLUCAN (FLUCONAZOL) [Concomitant]
     Indication: CANDIDA INFECTION
     Route: 048
     Dates: start: 20130715
  5. LOVENOX [Concomitant]
     Route: 058

REACTIONS (3)
  - Vomiting [Fatal]
  - Asthenia [Fatal]
  - Hypophagia [Fatal]
